FAERS Safety Report 14016251 (Version 1)
Quarter: 2017Q3

REPORT INFORMATION
  Report Type: Spontaneous
  Country: US (occurrence: US)
  Receive Date: 20170927
  Receipt Date: 20170927
  Transmission Date: 20171128
  Serious: No
  Sender: FDA-Public Use
  Company Number: US-SA-2016SA207572

PATIENT

DRUGS (1)
  1. LEMTRADA [Suspect]
     Active Substance: ALEMTUZUMAB
     Route: 041

REACTIONS (11)
  - Panic reaction [Unknown]
  - Chest pain [Unknown]
  - Headache [Unknown]
  - Fatigue [Unknown]
  - Somnolence [Unknown]
  - Throat tightness [Unknown]
  - Walking aid user [Unknown]
  - Back pain [Unknown]
  - Discomfort [Unknown]
  - Band sensation [Unknown]
  - Flushing [Unknown]
